FAERS Safety Report 25904746 (Version 2)
Quarter: 2025Q4

REPORT INFORMATION
  Report Type: Spontaneous
  Country: JP (occurrence: JP)
  Receive Date: 20251010
  Receipt Date: 20251212
  Transmission Date: 20260117
  Serious: Yes (Other)
  Sender: ASTELLAS
  Company Number: JP-ASTELLAS-2025-AER-055239

PATIENT
  Age: 6 Decade

DRUGS (1)
  1. PADCEV [Suspect]
     Active Substance: ENFORTUMAB VEDOTIN-EJFV
     Indication: Transitional cell carcinoma metastatic
     Route: 065

REACTIONS (4)
  - Ureteric obstruction [Recovered/Resolved]
  - Renal impairment [Recovered/Resolved]
  - Hepatic function abnormal [Unknown]
  - Decreased appetite [Recovering/Resolving]
